FAERS Safety Report 21524635 (Version 11)
Quarter: 2023Q4

REPORT INFORMATION
  Report Type: Spontaneous
  Country: US (occurrence: US)
  Receive Date: 20221030
  Receipt Date: 20231226
  Transmission Date: 20240110
  Serious: No
  Sender: FDA-Public Use
  Company Number: US-BRISTOL-MYERS SQUIBB COMPANY-2022-128543

PATIENT
  Age: 67 Year
  Sex: Female

DRUGS (1)
  1. POMALYST [Suspect]
     Active Substance: POMALIDOMIDE
     Indication: Plasma cell myeloma
     Route: 048
     Dates: start: 202210

REACTIONS (14)
  - Visual impairment [Unknown]
  - Blood glucose abnormal [Unknown]
  - Constipation [Unknown]
  - Memory impairment [Unknown]
  - Fatigue [Unknown]
  - Peripheral swelling [Unknown]
  - Faeces hard [Unknown]
  - Confusional state [Unknown]
  - Inappropriate schedule of product administration [Unknown]
  - Product dose omission in error [Unknown]
  - Headache [Unknown]
  - Blood glucose decreased [Unknown]
  - Joint swelling [Unknown]
  - Full blood count decreased [Unknown]

NARRATIVE: CASE EVENT DATE: 20221027
